FAERS Safety Report 6059189-3 (Version None)
Quarter: 2009Q1

REPORT INFORMATION
  Report Type: 
  Country: None (occurrence: None)
  Receive Date: 20090128
  Receipt Date: 20090115
  Transmission Date: 20090719
  Serious: Yes (Hospitalization, Other)
  Sender: FDA-Public Use
  Company Number: RENA-1000356

PATIENT
  Age: 40 Year
  Sex: Female

DRUGS (7)
  1. RENAGEL [Suspect]
     Indication: HYPERPHOSPHATAEMIA
     Dosage: 4800 MG, QD, ORAL
     Route: 048
     Dates: start: 20080206, end: 20080414
  2. PROGRAF [Suspect]
     Indication: IMMUNOSUPPRESSANT DRUG THERAPY
     Dosage: 2.5 MG, QD,
     Dates: start: 20050822, end: 20080410
  3. NEXIUM [Concomitant]
  4. ANAFRANIL [Concomitant]
  5. GUTRON (MIDODRINE HYDROCHLORIDE) [Concomitant]
  6. LEVOTHYROXINE SODIUM [Concomitant]
  7. MINIPARA (CINACALCET) [Concomitant]

REACTIONS (7)
  - CYTOLYTIC HEPATITIS [None]
  - DRUG INTERACTION [None]
  - HEPATIC SIDEROSIS [None]
  - HEPATIC STEATOSIS [None]
  - IMMUNOSUPPRESSANT DRUG LEVEL DECREASED [None]
  - JAUNDICE CHOLESTATIC [None]
  - LIVER TRANSPLANT REJECTION [None]
